FAERS Safety Report 6607620-4 (Version None)
Quarter: 2010Q1

REPORT INFORMATION
  Report Type: 
  Country: None (occurrence: None)
  Receive Date: 20100301
  Receipt Date: 20100223
  Transmission Date: 20100710
  Serious: Yes (Hospitalization)
  Sender: FDA-Public Use
  Company Number: US-SANOFI-AVENTIS-2010SA007599

PATIENT
  Age: 69 Year
  Sex: Male
  Weight: 84.6 kg

DRUGS (5)
  1. DOCETAXEL [Suspect]
     Indication: PROSTATE CANCER
     Route: 041
     Dates: start: 20100120, end: 20100120
  2. ATORVASTATIN CALCIUM [Concomitant]
  3. LISINOPRIL [Concomitant]
  4. ZOFRAN [Concomitant]
     Indication: NAUSEA
  5. HYDROCHLOROTHIAZIDE [Concomitant]

REACTIONS (6)
  - BLOOD CREATININE INCREASED [None]
  - CHEST PAIN [None]
  - HYPONATRAEMIA [None]
  - LEUKOPENIA [None]
  - LYMPHOPENIA [None]
  - NEUTROPENIA [None]
